FAERS Safety Report 6180285-4 (Version None)
Quarter: 2009Q2

REPORT INFORMATION
  Report Type: 
  Country: None (occurrence: None)
  Receive Date: 20090506
  Receipt Date: 20090422
  Transmission Date: 20091009
  Serious: Yes (Hospitalization, Other)
  Sender: FDA-Public Use
  Company Number: US-RANBAXY-2009US-22445

PATIENT

DRUGS (5)
  1. ISOTRETINOIN [Suspect]
     Indication: BRAIN NEOPLASM
     Dosage: 20 MG, UNK
     Route: 048
     Dates: start: 20081023
  2. AMNESTEEM [Suspect]
     Indication: DRUG USE FOR UNKNOWN INDICATION
     Dosage: 40 MG, UNK
     Route: 048
  3. CLARAVIS [Suspect]
     Indication: DRUG USE FOR UNKNOWN INDICATION
     Dosage: 40 MG, UNK
     Route: 048
  4. CLARAVIS [Suspect]
     Indication: DRUG USE FOR UNKNOWN INDICATION
     Dosage: 20 MG, UNK
     Route: 048
  5. ARASTIN [Concomitant]
     Indication: BRAIN NEOPLASM
     Dosage: UNK

REACTIONS (2)
  - GLIOBLASTOMA [None]
  - OFF LABEL USE [None]
